FAERS Safety Report 12195436 (Version 1)
Quarter: 2016Q1

REPORT INFORMATION
  Report Type: Spontaneous
  Country: US (occurrence: US)
  Receive Date: 20160321
  Receipt Date: 20160321
  Transmission Date: 20160526
  Serious: No
  Sender: FDA-Public Use
  Company Number: US-MORTON GROVE PHARMACEUTICALS, INC.-1049361

PATIENT
  Age: 74 Year
  Sex: Female

DRUGS (2)
  1. LOSARTAN. [Concomitant]
     Active Substance: LOSARTAN
  2. PROMETHAZINE WITH DEXTROMETHORPHAN [Suspect]
     Active Substance: DEXTROMETHORPHAN\PROMETHAZINE
     Indication: COUGH
     Route: 048
     Dates: start: 20151229

REACTIONS (1)
  - Drug ineffective [Recovered/Resolved]
